FAERS Safety Report 22646060 (Version 3)
Quarter: 2024Q3

REPORT INFORMATION
  Report Type: Report from Study
  Country: US (occurrence: US)
  Receive Date: 20230627
  Receipt Date: 20240813
  Transmission Date: 20241017
  Serious: Yes (Other)
  Sender: ROCHE
  Company Number: US-ROCHE-3377275

PATIENT
  Age: 31 Year
  Sex: Female
  Weight: 73.03 kg

DRUGS (2)
  1. ACTEMRA [Suspect]
     Active Substance: TOCILIZUMAB
     Indication: Still^s disease
     Dosage: INJECT 0.9ML
     Route: 058
     Dates: start: 2022, end: 202303
  2. ACTEMRA [Suspect]
     Active Substance: TOCILIZUMAB

REACTIONS (5)
  - Breast cancer [Not Recovered/Not Resolved]
  - Off label use [Unknown]
  - Blood pressure measurement [Unknown]
  - Anxiety [Unknown]
  - Depression [Unknown]

NARRATIVE: CASE EVENT DATE: 20230601
